FAERS Safety Report 23927220 (Version 1)
Quarter: 2024Q2

REPORT INFORMATION
  Report Type: Spontaneous
  Country: US (occurrence: US)
  Receive Date: 20240531
  Receipt Date: 20240531
  Transmission Date: 20240715
  Serious: No
  Sender: FDA-Public Use
  Company Number: US-RADIUS HEALTH, INC.-2023US005440

PATIENT
  Age: 59 Year
  Sex: Female
  Weight: 47.574 kg

DRUGS (1)
  1. TYMLOS [Suspect]
     Active Substance: ABALOPARATIDE
     Indication: Bone density decreased
     Dosage: 80 MICROGRAM, QD
     Route: 058
     Dates: start: 20230915, end: 20231016

REACTIONS (4)
  - Trismus [Recovering/Resolving]
  - Feeling drunk [Recovering/Resolving]
  - Headache [Recovering/Resolving]
  - Heart rate increased [Recovering/Resolving]

NARRATIVE: CASE EVENT DATE: 20230901
